FAERS Safety Report 6867983-1 (Version None)
Quarter: 2010Q3

REPORT INFORMATION
  Report Type: 
  Country: None (occurrence: None)
  Receive Date: 20100722
  Receipt Date: 20090417
  Transmission Date: 20110219
  Serious: Yes (Other)
  Sender: FDA-Public Use
  Company Number: US-PFIZER INC-2008039715

PATIENT
  Sex: Female
  Weight: 77.098 kg

DRUGS (1)
  1. CHANTIX [Suspect]
     Indication: SMOKING CESSATION THERAPY
     Dosage: UNK
     Dates: start: 20080401, end: 20080101

REACTIONS (2)
  - ANGER [None]
  - SUICIDAL IDEATION [None]
